FAERS Safety Report 5753842-4 (Version None)
Quarter: 2008Q2

REPORT INFORMATION
  Report Type: 
  Country: None (occurrence: None)
  Receive Date: 20080530
  Receipt Date: 20070606
  Transmission Date: 20081010
  Serious: No
  Sender: FDA-Public Use
  Company Number: A0655326A

PATIENT
  Age: 74 Year
  Sex: Female

DRUGS (17)
  1. FLOLAN [Suspect]
     Indication: PULMONARY HYPERTENSION
     Route: 042
     Dates: start: 20040721
  2. XANAX [Concomitant]
     Dosage: .5MG AT NIGHT
     Route: 048
  3. AMBIEN [Concomitant]
     Dosage: 10MG AT NIGHT
     Route: 048
  4. ESTER C [Concomitant]
     Dosage: 500MG TWICE PER DAY
     Route: 048
  5. CO Q 10 [Concomitant]
     Dosage: 300MG PER DAY
     Route: 048
  6. N-ACETYL-L-CYSTEINE [Concomitant]
  7. SAM E [Concomitant]
     Dosage: 400MG PER DAY
     Route: 048
  8. WARFARIN SODIUM [Concomitant]
     Dosage: 5MG PER DAY
     Route: 048
  9. L-ARGININE [Concomitant]
     Dosage: 700MG TWICE PER DAY
     Route: 048
  10. MULTIVITAMIN + MINERAL SUPPLEMENTS [Concomitant]
     Dosage: 1TAB PER DAY
     Route: 048
  11. OMEGA 3 FISH OIL [Concomitant]
     Dosage: 2CAP THREE TIMES PER DAY
     Route: 048
  12. TRACLEER [Concomitant]
     Dosage: 125MG TWICE PER DAY
     Route: 048
  13. LASIX [Concomitant]
     Dosage: 20MG PER DAY
     Route: 048
  14. SPIRONOLACTONE [Concomitant]
     Dosage: 50MG PER DAY
     Route: 048
  15. TYLENOL [Concomitant]
     Dosage: 1000MG AS REQUIRED
     Route: 048
  16. LIPITOR [Concomitant]
     Dosage: 10MG PER DAY
     Route: 048
  17. OXYCODONE HCL [Concomitant]
     Dosage: 5MG FIVE TIMES PER DAY
     Route: 048

REACTIONS (1)
  - RASH [None]
